FAERS Safety Report 13792558 (Version 1)
Quarter: 2017Q3

REPORT INFORMATION
  Report Type: Spontaneous
  Country: MY (occurrence: MY)
  Receive Date: 20170726
  Receipt Date: 20170726
  Transmission Date: 20171127
  Serious: Yes (Other)
  Sender: FDA-Public Use
  Company Number: MY-BAYER-2017-140833

PATIENT
  Age: 66 Year
  Sex: Female

DRUGS (10)
  1. SIMVASTATIN. [Concomitant]
     Active Substance: SIMVASTATIN
     Dosage: 20 MG, UNK
  2. ACTRAPID [Concomitant]
     Active Substance: INSULIN HUMAN
  3. INDAPAMIDE. [Suspect]
     Active Substance: INDAPAMIDE
  4. METFORMIN [Concomitant]
     Active Substance: METFORMIN HYDROCHLORIDE
     Dosage: 1 G, UNK
  5. FELODIPINE. [Suspect]
     Active Substance: FELODIPINE
  6. ATENOLOL. [Suspect]
     Active Substance: ATENOLOL
  7. PERINDOPRIL [Suspect]
     Active Substance: PERINDOPRIL
  8. PRAZOSIN. [Concomitant]
     Active Substance: PRAZOSIN
     Dosage: 0.5 MG, UNK
  9. ACETYLSALICYLIC ACID({=100 MG) [Suspect]
     Active Substance: ASPIRIN
     Dosage: UNK
  10. ISOPHANE INSULIN [Concomitant]
     Active Substance: INSULIN NOS

REACTIONS (2)
  - Deafness neurosensory [Recovering/Resolving]
  - Tinnitus [Recovered/Resolved]
